FAERS Safety Report 15076447 (Version 1)
Quarter: 2018Q2

REPORT INFORMATION
  Report Type: Report from Study
  Country: None (occurrence: NO)
  Receive Date: 20180627
  Receipt Date: 20180627
  Transmission Date: 20180711
  Serious: Yes (Hospitalization)
  Sender: FDA-Public Use
  Company Number: NO-ABBVIE-18K-122-2397001-00

PATIENT
  Sex: Male

DRUGS (1)
  1. DUODOPA [Suspect]
     Active Substance: CARBIDOPA\LEVODOPA
     Indication: PRODUCT USED FOR UNKNOWN INDICATION
     Route: 050

REACTIONS (7)
  - Stoma site discharge [Recovered/Resolved]
  - Device kink [Not Recovered/Not Resolved]
  - Gastric ulcer [Unknown]
  - Medical device site erosion [Unknown]
  - Stoma site hypergranulation [Unknown]
  - Device breakage [Not Recovered/Not Resolved]
  - Stoma site erythema [Unknown]
